FAERS Safety Report 9148331 (Version 1)
Quarter: 2013Q1

REPORT INFORMATION
  Report Type: Spontaneous
  Country: US (occurrence: None)
  Receive Date: 20130228
  Receipt Date: 20130228
  Transmission Date: 20140127
  Serious: Yes (Life-Threatening, Hospitalization)
  Sender: FDA-Public Use
  Company Number: None

PATIENT
  Age: 76 Year
  Sex: Female
  Weight: 98 kg

DRUGS (1)
  1. DOFETILIDE 250 MCG [Suspect]
     Indication: ATRIAL FIBRILLATION
     Route: 048
     Dates: start: 20121112, end: 20121112

REACTIONS (2)
  - Torsade de pointes [None]
  - Cardio-respiratory arrest [None]
